FAERS Safety Report 7596087-8 (Version None)
Quarter: 2011Q3

REPORT INFORMATION
  Report Type: 
  Country: None (occurrence: None)
  Receive Date: 20110707
  Receipt Date: 20110623
  Transmission Date: 20111222
  Serious: No
  Sender: FDA-Public Use
  Company Number: US-B.I. PHARMACEUTICALS,INC./RIDGEFIELD-2011-BP-14571BP

PATIENT
  Sex: Female

DRUGS (14)
  1. PRADAXA [Suspect]
     Indication: ATRIAL FIBRILLATION
     Dosage: 300 MG
     Route: 048
     Dates: start: 20110101
  2. ALPHAGAN [Concomitant]
     Indication: GLAUCOMA
  3. ANASTROZOLE [Concomitant]
     Dosage: 1 MG
     Route: 048
  4. BETOPTIC [Concomitant]
     Indication: GLAUCOMA
  5. ALBUTEROL SULFATE AUTOHALER [Concomitant]
     Indication: CHRONIC OBSTRUCTIVE PULMONARY DISEASE
     Route: 055
  6. AZOPT [Concomitant]
     Indication: GLAUCOMA
  7. ADVAIR DISKUS 100/50 [Concomitant]
     Indication: CHRONIC OBSTRUCTIVE PULMONARY DISEASE
     Route: 055
  8. LUMIGAN [Concomitant]
  9. PRADAXA [Suspect]
     Indication: ANTICOAGULANT THERAPY
  10. LATANOPROST [Concomitant]
     Indication: GLAUCOMA
  11. ATENOLOL [Concomitant]
     Indication: HYPERTENSION
     Dosage: 25 MG
     Route: 048
  12. LASIX [Concomitant]
     Indication: HYPERTENSION
     Dosage: 20 MG
     Route: 048
  13. LEVOTHYROXINE SODIUM [Concomitant]
     Indication: THYROID DISORDER
     Dosage: 12.5 MG
     Route: 048
  14. AMLODIPINE [Concomitant]
     Indication: HYPERTENSION
     Dosage: 10 MG
     Route: 048

REACTIONS (4)
  - ABDOMINAL DISCOMFORT [None]
  - INTRAOCULAR PRESSURE INCREASED [None]
  - VISION BLURRED [None]
  - GLAUCOMA [None]
